FAERS Safety Report 14880198 (Version 1)
Quarter: 2018Q2

REPORT INFORMATION
  Report Type: Spontaneous
  Country: US (occurrence: US)
  Receive Date: 20180425
  Receipt Date: 20180425
  Transmission Date: 20180711
  Serious: Yes (Hospitalization)
  Sender: FDA-Public Use
  Company Number: None

PATIENT
  Age: 82 Year
  Sex: Female
  Weight: 57 kg

DRUGS (2)
  1. SORAFENIB [Suspect]
     Active Substance: SORAFENIB
     Indication: ACUTE MYELOID LEUKAEMIA
     Dates: start: 20171228, end: 20180225
  2. CYTARABINE. [Concomitant]
     Active Substance: CYTARABINE
     Dates: start: 20171218, end: 20180212

REACTIONS (2)
  - Haematochezia [None]
  - Anaemia [None]

NARRATIVE: CASE EVENT DATE: 20180225
